FAERS Safety Report 9357819 (Version 1)
Quarter: 2013Q2

REPORT INFORMATION
  Report Type: Spontaneous
  Country: US (occurrence: None)
  Receive Date: 20130619
  Receipt Date: 20130619
  Transmission Date: 20140414
  Serious: Yes (Hospitalization)
  Sender: FDA-Public Use
  Company Number: None

PATIENT
  Age: 69 Year
  Sex: Male
  Weight: 62.4 kg

DRUGS (2)
  1. NAPROXEN [Suspect]
     Indication: ARTHRALGIA
     Route: 048
     Dates: start: 20130603, end: 20130615
  2. PREDNISONE [Suspect]
     Indication: ARTHRALGIA
     Route: 048
     Dates: start: 20130603, end: 20130615

REACTIONS (3)
  - Gastric haemorrhage [None]
  - Gastric ulcer [None]
  - Haemoglobin decreased [None]
